FAERS Safety Report 6821330-X (Version None)
Quarter: 2010Q3

REPORT INFORMATION
  Report Type: 
  Country: None (occurrence: None)
  Receive Date: 20100707
  Receipt Date: 20080715
  Transmission Date: 20110219
  Serious: Yes (Hospitalization)
  Sender: FDA-Public Use
  Company Number: US-PFIZER INC-2008059457

PATIENT
  Sex: Female

DRUGS (2)
  1. ZOLOFT [Suspect]
     Route: 048
  2. CLOZAPINE [Suspect]
     Route: 048
     Dates: start: 20071001, end: 20080401

REACTIONS (1)
  - GRAND MAL CONVULSION [None]
